FAERS Safety Report 4602912-2 (Version None)
Quarter: 2005Q1

REPORT INFORMATION
  Report Type: 
  Country: None (occurrence: None)
  Receive Date: 20050309
  Receipt Date: 20050303
  Transmission Date: 20050727
  Serious: Yes (Other)
  Sender: FDA-Public Use
  Company Number: PHNU2005DE01212

PATIENT
  Sex: Male

DRUGS (1)
  1. IMMUNOSPORIN [Suspect]
     Dosage: 100 MG, QD
     Dates: start: 20040817

REACTIONS (1)
  - THROMBOSIS [None]
